FAERS Safety Report 15088535 (Version 3)
Quarter: 2022Q2

REPORT INFORMATION
  Report Type: Spontaneous
  Country: JP (occurrence: JP)
  Receive Date: 20180629
  Receipt Date: 20220616
  Transmission Date: 20220720
  Serious: Yes (Hospitalization)
  Sender: FDA-Public Use
  Company Number: JP-TEVA-2018-JP-919142

PATIENT
  Age: 84 Year
  Sex: Female

DRUGS (2)
  1. CILOSTAZOL [Suspect]
     Active Substance: CILOSTAZOL
     Indication: Antiplatelet therapy
     Dosage: 100 MILLIGRAM DAILY;
     Route: 048
  2. DULOXETINE [Suspect]
     Active Substance: DULOXETINE
     Indication: Analgesic therapy
     Dosage: 40 MILLIGRAM DAILY;
     Route: 048

REACTIONS (2)
  - Ventricular fibrillation [Recovered/Resolved]
  - Long QT syndrome [Recovered/Resolved]
